FAERS Safety Report 7000758-1 (Version None)
Quarter: 2010Q3

REPORT INFORMATION
  Report Type: 
  Country: None (occurrence: None)
  Receive Date: 20100920
  Receipt Date: 20091222
  Transmission Date: 20110219
  Serious: Yes (Other)
  Sender: FDA-Public Use
  Company Number: US-ASTRAZENECA-2007UW16106

PATIENT
  Age: 39 Year
  Sex: Female
  Weight: 102.1 kg

DRUGS (2)
  1. SEROQUEL [Suspect]
     Indication: COMPLEX REGIONAL PAIN SYNDROME
     Route: 048
     Dates: start: 20021017
  2. SEROQUEL [Suspect]
     Route: 048
     Dates: start: 20021017

REACTIONS (7)
  - BLOOD CHOLESTEROL INCREASED [None]
  - GESTATIONAL DIABETES [None]
  - HYPERLIPIDAEMIA [None]
  - MOVEMENT DISORDER [None]
  - OBESITY [None]
  - TARDIVE DYSKINESIA [None]
  - TYPE 2 DIABETES MELLITUS [None]
